FAERS Safety Report 13061344 (Version 1)
Quarter: 2016Q4

REPORT INFORMATION
  Report Type: Spontaneous
  Country: US (occurrence: US)
  Receive Date: 20161226
  Receipt Date: 20161226
  Transmission Date: 20170207
  Serious: No
  Sender: FDA-Public Use
  Company Number: US-B.I. PHARMACEUTICALS,INC./RIDGEFIELD-2016-BI-086491

PATIENT
  Age: 88 Year
  Sex: Female

DRUGS (4)
  1. ZANTAC [Suspect]
     Active Substance: RANITIDINE HYDROCHLORIDE
     Indication: GASTROOESOPHAGEAL REFLUX DISEASE
     Dosage: TWICE DAILY- 30 MIN BEFORE MEALS;  FORM STRENGTH: 150 MG; FORMULATION: TABLET? ADMINISTRATION CORREC
     Route: 048
     Dates: start: 201509, end: 201607
  2. CALCIUM [Concomitant]
     Active Substance: CALCIUM
     Indication: BONE DISORDER
     Dosage: ONE TABLET ONCE DAILY;  FORM STRENGTH: 200MG; FORMULATION: TABLET
     Route: 048
  3. ZANTAC [Suspect]
     Active Substance: RANITIDINE HYDROCHLORIDE
     Dosage: ONCE DAILY- 30 MIN BEFORE BREAKFAST;  FORM STRENGTH: 150 MG; FORMULATION: TABLET? ADMINISTRATION COR
     Route: 048
     Dates: start: 201607
  4. VITAMIN D3 [Concomitant]
     Active Substance: CHOLECALCIFEROL
     Indication: VITAMIN D DEFICIENCY
     Dosage: ONE TABLET ONCE DAILY;  FORM STRENGTH: 500MG; FORMULATION: TABLET
     Route: 048

REACTIONS (3)
  - Onychoclasis [Not Recovered/Not Resolved]
  - Nail growth abnormal [Not Recovered/Not Resolved]
  - Off label use [Unknown]

NARRATIVE: CASE EVENT DATE: 201509
